FAERS Safety Report 8889726 (Version 1)
Quarter: 2012Q4

REPORT INFORMATION
  Report Type: 
  Country: GB (occurrence: GB)
  Receive Date: 20121107
  Receipt Date: 20121107
  Transmission Date: 20130627
  Serious: Yes (Death)
  Sender: FDA-Public Use
  Company Number: GB-TEVA-367101ISR

PATIENT
  Age: 69 Year
  Sex: Female
  Weight: 80 kg

DRUGS (5)
  1. DIAZEPAM [Suspect]
  2. NITRAZEPAM [Suspect]
  3. CITALOPRAM [Suspect]
  4. GALANTAMINE HYDROBROMIDE [Interacting]
  5. ATIVAN [Suspect]

REACTIONS (4)
  - Drug interaction [Fatal]
  - Withdrawal syndrome [Fatal]
  - Accidental overdose [Fatal]
  - Catatonia [Fatal]
